FAERS Safety Report 8375808-0 (Version None)
Quarter: 2012Q2

REPORT INFORMATION
  Report Type: 
  Country: None (occurrence: None)
  Receive Date: 20120518
  Receipt Date: 20120510
  Transmission Date: 20120825
  Serious: Yes (Other)
  Sender: FDA-Public Use
  Company Number: AE12-044

PATIENT
  Age: 55 Year
  Sex: Female

DRUGS (4)
  1. TYLENOL [Concomitant]
  2. REGLAN [Concomitant]
  3. BUTALBITAL AND ACETAMINOPHEN [Suspect]
     Indication: TENSION HEADACHE
     Dosage: 50/325 EVERY 12HRS ORAL
     Route: 048
     Dates: end: 20120401
  4. COMPAZINE [Concomitant]

REACTIONS (5)
  - NAUSEA [None]
  - VOMITING [None]
  - HYPERHIDROSIS [None]
  - IMPAIRED GASTRIC EMPTYING [None]
  - ABDOMINAL DISCOMFORT [None]
